FAERS Safety Report 12972041 (Version 6)
Quarter: 2017Q2

REPORT INFORMATION
  Report Type: Report from Study
  Country: GB (occurrence: GB)
  Receive Date: 20161124
  Receipt Date: 20170524
  Transmission Date: 20170830
  Serious: Yes (Other)
  Sender: FDA-Public Use
  Company Number: GB-ASTRAZENECA-2016SF22369

PATIENT
  Age: 48 Year
  Sex: Female
  Weight: 55.9 kg

DRUGS (5)
  1. TEMOZOLOMIDE. [Suspect]
     Active Substance: TEMOZOLOMIDE
     Indication: GLIOBLASTOMA
     Dosage: ON DAYS 1 TO 7 EACH WEEK
     Route: 048
     Dates: start: 20160719, end: 20160829
  2. AZD2281 [Suspect]
     Active Substance: OLAPARIB
     Indication: GLIOBLASTOMA
     Route: 048
     Dates: start: 20160622, end: 20160627
  3. AZD2281 [Suspect]
     Active Substance: OLAPARIB
     Indication: GLIOBLASTOMA
     Dosage: ON DAYS 1 TO 3 EACH WEEK
     Route: 048
     Dates: start: 20160718, end: 20160817
  4. AZD2281 [Suspect]
     Active Substance: OLAPARIB
     Indication: GLIOBLASTOMA
     Route: 048
     Dates: start: 20160926, end: 20161027
  5. TEMOZOLOMIDE. [Suspect]
     Active Substance: TEMOZOLOMIDE
     Indication: GLIOBLASTOMA
     Route: 048
     Dates: start: 20160926, end: 20161027

REACTIONS (1)
  - Pancytopenia [Recovered/Resolved with Sequelae]

NARRATIVE: CASE EVENT DATE: 20161024
